FAERS Safety Report 4786515-5 (Version None)
Quarter: 2005Q4

REPORT INFORMATION
  Report Type: 
  Country: None (occurrence: None)
  Receive Date: 20051003
  Receipt Date: 20050923
  Transmission Date: 20060501
  Serious: Yes (Other)
  Sender: FDA-Public Use
  Company Number: FR-ABBOTT-05P-056-0312033-00

PATIENT
  Age: 6 Year

DRUGS (1)
  1. DEPAKINE SYRUP 200MG/ML [Suspect]
     Indication: FEBRILE CONVULSION
     Route: 048
     Dates: start: 20050913, end: 20050915

REACTIONS (2)
  - ATROPHY OF TONGUE PAPILLAE [None]
  - ORAL PUSTULE [None]
